FAERS Safety Report 11776815 (Version 1)
Quarter: 2015Q4

REPORT INFORMATION
  Report Type: Spontaneous
  Country: US (occurrence: None)
  Receive Date: 20151123
  Receipt Date: 20151123
  Transmission Date: 20160304
  Serious: Yes (Other)
  Sender: FDA-Public Use
  Company Number: None

PATIENT
  Age: 68 Year
  Sex: Male

DRUGS (25)
  1. OXYCODONE [Concomitant]
     Active Substance: OXYCODONE
  2. LUPRON DEPOT [Concomitant]
     Active Substance: LEUPROLIDE ACETATE
  3. CALCIUM 500 + D [Concomitant]
     Active Substance: CALCIUM\VITAMIN D
  4. HYDROCHLOROTHIAZIDE. [Concomitant]
     Active Substance: HYDROCHLOROTHIAZIDE
  5. FINASTERIDE. [Concomitant]
     Active Substance: FINASTERIDE
  6. FENOFIBRATE. [Concomitant]
     Active Substance: FENOFIBRATE
  7. MULTIVITAMINS [Concomitant]
     Active Substance: VITAMINS
  8. PREDNISONE. [Concomitant]
     Active Substance: PREDNISONE
  9. METOPROLOL TARTRATE. [Concomitant]
     Active Substance: METOPROLOL TARTRATE
  10. LOSARTAN. [Concomitant]
     Active Substance: LOSARTAN
  11. ZYTIGA [Suspect]
     Active Substance: ABIRATERONE ACETATE
     Indication: PROSTATE CANCER
     Route: 048
     Dates: start: 20151027
  12. SIMVASTATIN. [Concomitant]
     Active Substance: SIMVASTATIN
  13. POTASSIUM [Concomitant]
     Active Substance: POTASSIUM
  14. LANTUS [Concomitant]
     Active Substance: INSULIN GLARGINE
  15. TAMSULOSIN [Concomitant]
     Active Substance: TAMSULOSIN
  16. ACETAMINOPHEN. [Concomitant]
     Active Substance: ACETAMINOPHEN
  17. VITAMIN B COMPLEX [Concomitant]
     Active Substance: CYANOCOBALAMIN\DEXPANTHENOL\NIACINAMIDE\PYRIDOXINE HYDROCHLORIDE\RIBOFLAVIN 5^-PHOSPHATE SODIUM\THIAMINE HYDROCHLORIDE\VITAMIN B COMPLEX
  18. VITAMIN A [Concomitant]
     Active Substance: VITAMIN A
  19. LYCOPENE [Concomitant]
     Active Substance: LYCOPENE
  20. FLUTICASONE [Concomitant]
     Active Substance: FLUTICASONE\FLUTICASONE PROPIONATE
  21. NASAL INHALER [Concomitant]
     Active Substance: UNSPECIFIED INGREDIENT
  22. GLIMEPIRIDE. [Concomitant]
     Active Substance: GLIMEPIRIDE
  23. METFORMIN [Concomitant]
     Active Substance: METFORMIN HYDROCHLORIDE
  24. FLAXSEED [Concomitant]
     Active Substance: FLAX SEED
  25. ADVAIR DISCUS [Concomitant]

REACTIONS (4)
  - Somnolence [None]
  - Hot flush [None]
  - Muscular weakness [None]
  - Muscle spasms [None]

NARRATIVE: CASE EVENT DATE: 20151120
